FAERS Safety Report 5495847-7 (Version None)
Quarter: 2007Q4

REPORT INFORMATION
  Report Type: 
  Country: None (occurrence: None)
  Receive Date: 20071025
  Receipt Date: 20061101
  Transmission Date: 20080405
  Serious: No
  Sender: FDA-Public Use
  Company Number: A0625828A

PATIENT
  Age: 51 Year
  Sex: Male

DRUGS (6)
  1. ADVAIR DISKUS 100/50 [Suspect]
     Indication: DRUG USE FOR UNKNOWN INDICATION
     Dosage: 1PUFF TWICE PER DAY
     Route: 055
     Dates: start: 20061027
  2. COMBIVENT [Concomitant]
  3. SEROQUEL [Concomitant]
  4. NEXIUM [Concomitant]
  5. LEXAPRO [Concomitant]
  6. UNSPECIFIED MEDICATION [Concomitant]

REACTIONS (1)
  - DRUG INEFFECTIVE [None]
